FAERS Safety Report 9904586 (Version 2)
Quarter: 2014Q2

REPORT INFORMATION
  Report Type: Spontaneous
  Country: IT (occurrence: IT)
  Receive Date: 20140218
  Receipt Date: 20140529
  Transmission Date: 20141212
  Serious: Yes (Hospitalization)
  Sender: FDA-Public Use
  Company Number: IT-009507513-1402ITA007108

PATIENT
  Age: 50 Year
  Sex: Female
  Weight: 60 kg

DRUGS (1)
  1. PLANUM [Suspect]
     Indication: ORAL CONTRACEPTION
     Dosage: 1 DOSE (UNIT) DAILY, QD; STRENGHT: 0.15 MG + 0.03 MG TABLET
     Route: 048
     Dates: start: 2000, end: 2010

REACTIONS (1)
  - Cerebral ischaemia [Recovered/Resolved]
